FAERS Safety Report 26113640 (Version 1)
Quarter: 2025Q4

REPORT INFORMATION
  Report Type: Spontaneous
  Country: US (occurrence: US)
  Receive Date: 20251202
  Receipt Date: 20251202
  Transmission Date: 20260117
  Serious: Yes (Other)
  Sender: AMGEN
  Company Number: US-AMGEN-USASP2025235813

PATIENT
  Age: 86 Year
  Sex: Female

DRUGS (1)
  1. PREDNISONE [Suspect]
     Active Substance: PREDNISONE
     Indication: Myalgia
     Dosage: 15 MILLIGRAM, QD
     Route: 065

REACTIONS (3)
  - Deep vein thrombosis [Unknown]
  - Polymyalgia rheumatica [Unknown]
  - Therapeutic product effect incomplete [Unknown]
